FAERS Safety Report 9745249 (Version 1)
Quarter: 2013Q4

REPORT INFORMATION
  Report Type: Spontaneous
  Country: US (occurrence: US)
  Receive Date: 20131211
  Receipt Date: 20131211
  Transmission Date: 20140711
  Serious: No
  Sender: FDA-Public Use
  Company Number: US-PFIZER INC-2013349433

PATIENT
  Age: 39 Year
  Sex: Female
  Weight: 58.96 kg

DRUGS (3)
  1. ADVIL [Suspect]
     Indication: MIGRAINE
     Dosage: 400 MG (2 X 200MG CAPSULE), AS NEEDED
     Dates: start: 2012, end: 2013
  2. ARMOUR THYROID [Concomitant]
     Indication: HYPOTHYROIDISM
     Dosage: UNK
  3. CYTOMEL [Concomitant]
     Indication: HYPOTHYROIDISM
     Dosage: UNK

REACTIONS (1)
  - Nausea [Unknown]
